FAERS Safety Report 11457383 (Version 2)
Quarter: 2015Q4

REPORT INFORMATION
  Report Type: Spontaneous
  Country: DE (occurrence: DE)
  Receive Date: 20150904
  Receipt Date: 20151002
  Transmission Date: 20160304
  Serious: No
  Sender: FDA-Public Use
  Company Number: DE-009507513-1508DEU006588

PATIENT
  Age: 50 Year
  Sex: Female

DRUGS (1)
  1. ECURAL [Suspect]
     Active Substance: MOMETASONE
     Indication: ECZEMA
     Dosage: UNK
     Route: 061
     Dates: start: 20150731, end: 20150812

REACTIONS (5)
  - Urinary retention [Unknown]
  - Vomiting [Unknown]
  - Cystitis [Unknown]
  - Paraesthesia [Unknown]
  - Hypersensitivity [Unknown]

NARRATIVE: CASE EVENT DATE: 2015
